FAERS Safety Report 7901214-6 (Version None)
Quarter: 2011Q4

REPORT INFORMATION
  Report Type: 
  Country: None (occurrence: None)
  Receive Date: 20111108
  Receipt Date: 20111026
  Transmission Date: 20120403
  Serious: Yes (Hospitalization)
  Sender: FDA-Public Use
  Company Number: PHFR2011GB06215

PATIENT
  Age: 50 Year
  Sex: Male

DRUGS (2)
  1. RITALIN [Suspect]
  2. ESCITALOPRAM [Concomitant]

REACTIONS (2)
  - BRAIN NEOPLASM [None]
  - ADRENOMEGALY [None]
